FAERS Safety Report 5125015-X (Version None)
Quarter: 2006Q4

REPORT INFORMATION
  Report Type: 
  Country: None (occurrence: None)
  Receive Date: 20061011
  Receipt Date: 20061007
  Transmission Date: 20070319
  Serious: Yes (Death)
  Sender: FDA-Public Use
  Company Number: PHBS2006IN15622

PATIENT
  Age: 72 Year
  Sex: Male

DRUGS (2)
  1. VOVERAN [Suspect]
     Indication: ARTHRALGIA
     Dosage: 3 ML, ONCE/SINGLE
     Route: 030
  2. GENTAMICIN [Concomitant]
     Dosage: 2 ML, UNK

REACTIONS (4)
  - CIRCULATORY COLLAPSE [None]
  - DIZZINESS [None]
  - DYSPNOEA [None]
  - PRURITUS [None]
